FAERS Safety Report 13418521 (Version 8)
Quarter: 2019Q2

REPORT INFORMATION
  Report Type: Spontaneous
  Country: US (occurrence: US)
  Receive Date: 20170406
  Receipt Date: 20190409
  Transmission Date: 20190711
  Serious: Yes (Death)
  Sender: FDA-Public Use
  Company Number: US-ACTELION-A-NJ2017-152126

PATIENT
  Sex: Female
  Weight: 65.31 kg

DRUGS (6)
  1. ADEMPAS [Concomitant]
     Active Substance: RIOCIGUAT
  2. WARFARIN [Concomitant]
     Active Substance: WARFARIN
  3. SILDENAFIL CITRATE. [Concomitant]
     Active Substance: SILDENAFIL CITRATE
  4. UPTRAVI [Suspect]
     Active Substance: SELEXIPAG
     Indication: PULMONARY ARTERIAL HYPERTENSION
     Dosage: 1600 MCG, BID
     Route: 048
  5. XARELTO [Concomitant]
     Active Substance: RIVAROXABAN
  6. OPSUMIT [Suspect]
     Active Substance: MACITENTAN
     Indication: PULMONARY ARTERIAL HYPERTENSION
     Dosage: 10 MG, QD
     Route: 048

REACTIONS (10)
  - Abdominal distension [Unknown]
  - Influenza [Unknown]
  - Pyrexia [Unknown]
  - Flatulence [Unknown]
  - Diarrhoea [Unknown]
  - Pulmonary hypertension [Fatal]
  - Headache [Unknown]
  - Disease progression [Fatal]
  - Dyspnoea [Recovering/Resolving]
  - Abdominal discomfort [Unknown]
